FAERS Safety Report 7601727-0 (Version None)
Quarter: 2011Q3

REPORT INFORMATION
  Report Type: 
  Country: None (occurrence: None)
  Receive Date: 20110711
  Receipt Date: 20110705
  Transmission Date: 20111222
  Serious: Yes (Hospitalization, Other)
  Sender: FDA-Public Use
  Company Number: US-ABBOTT-11P-163-0728302-00

PATIENT
  Sex: Female
  Weight: 63.56 kg

DRUGS (8)
  1. CLOBETASOL PROPIONATE [Concomitant]
     Indication: PRODUCT USED FOR UNKNOWN INDICATION
  2. HUMIRA [Suspect]
     Indication: PSORIASIS
  3. HUMIRA [Suspect]
     Indication: PSORIATIC ARTHROPATHY
     Dates: start: 20110311, end: 20110514
  4. ENOXAPARIN [Suspect]
     Indication: ANTICOAGULANT THERAPY
  5. BYETTA [Concomitant]
     Indication: DIABETES MELLITUS
  6. EFFEXOR [Concomitant]
     Indication: PRODUCT USED FOR UNKNOWN INDICATION
  7. ENOXAPARIN [Suspect]
     Indication: HIP SURGERY
     Dates: start: 20110515, end: 20110523
  8. LEVOTHYROXINE SODIUM [Concomitant]
     Indication: HYPOTHYROIDISM

REACTIONS (14)
  - SKIN HAEMORRHAGE [None]
  - STAPHYLOCOCCAL INFECTION [None]
  - ARTHRITIS [None]
  - JOINT EFFUSION [None]
  - HAEMORRHAGE [None]
  - THINKING ABNORMAL [None]
  - ARTHRALGIA [None]
  - BLOOD TEST ABNORMAL [None]
  - JOINT SWELLING [None]
  - JOINT ABSCESS [None]
  - ARTHRITIS BACTERIAL [None]
  - FATIGUE [None]
  - SKIN PLAQUE [None]
  - COAGULOPATHY [None]
